FAERS Safety Report 9398226 (Version 1)
Quarter: 2013Q3

REPORT INFORMATION
  Report Type: Spontaneous
  Country: US (occurrence: US)
  Receive Date: 20130712
  Receipt Date: 20130712
  Transmission Date: 20140515
  Serious: No
  Sender: FDA-Public Use
  Company Number: US-GLAXOSMITHKLINE-A0997509A

PATIENT
  Age: 68 Year
  Sex: Female

DRUGS (7)
  1. FLOVENT [Suspect]
     Indication: ASTHMA
     Dosage: 1PUFF TWICE PER DAY
     Route: 055
     Dates: start: 201208
  2. METFORMIN [Concomitant]
  3. SYNTHROID [Concomitant]
  4. LOVASTATIN [Concomitant]
  5. MULTIVITAMIN [Concomitant]
  6. FISH OIL [Concomitant]
  7. CALCIUM [Concomitant]

REACTIONS (1)
  - Blood glucose increased [Unknown]
